FAERS Safety Report 17630455 (Version 1)
Quarter: 2020Q2

REPORT INFORMATION
  Report Type: Spontaneous
  Country: US (occurrence: US)
  Receive Date: 20200404
  Receipt Date: 20200404
  Transmission Date: 20200713
  Serious: Yes (Other)
  Sender: FDA-Public Use
  Company Number: None

PATIENT
  Age: 67 Year
  Sex: Female
  Weight: 98.7 kg

DRUGS (5)
  1. MELATONIN 5 MG [Concomitant]
     Dates: start: 20191123, end: 20191126
  2. FIDAXOMICIN [Suspect]
     Active Substance: FIDAXOMICIN
     Indication: CLOSTRIDIUM DIFFICILE INFECTION
     Route: 048
     Dates: start: 20191123, end: 20191124
  3. TRAZODONE 25 MG [Concomitant]
     Dates: start: 20191123, end: 20191124
  4. FIDAXOMICIN [Suspect]
     Active Substance: FIDAXOMICIN
     Indication: INFECTION
     Route: 048
     Dates: start: 20191123, end: 20191124
  5. METOPROLOL SUCCINATE 25 MG [Concomitant]
     Active Substance: METOPROLOL SUCCINATE
     Dates: start: 20191123, end: 20191126

REACTIONS (2)
  - Rash morbilliform [None]
  - Drug eruption [None]

NARRATIVE: CASE EVENT DATE: 20191124
